FAERS Safety Report 9819649 (Version 2)
Quarter: 2014Q1

REPORT INFORMATION
  Report Type: Spontaneous
  Country: US (occurrence: None)
  Receive Date: 20140113
  Receipt Date: 20140122
  Transmission Date: 20141002
  Serious: Yes (Death, Hospitalization)
  Sender: FDA-Public Use
  Company Number: UTC-042193

PATIENT
  Age: 59 Year
  Sex: Male

DRUGS (1)
  1. REMODULIN [Suspect]
     Indication: PULMONARY ARTERIAL HYPERTENSION
     Dosage: 46.08 UG/KG (0.032 UG/KG, 1 IN 1 MIN)
     Dates: start: 20100801

REACTIONS (6)
  - Subdural haematoma [None]
  - Fall [None]
  - Head injury [None]
  - Subarachnoid haemorrhage [None]
  - Platelet count decreased [None]
  - Liver disorder [None]
